FAERS Safety Report 25154567 (Version 1)
Quarter: 2025Q2

REPORT INFORMATION
  Report Type: Spontaneous
  Country: IT (occurrence: IT)
  Receive Date: 20250403
  Receipt Date: 20250403
  Transmission Date: 20250717
  Serious: Yes (Life-Threatening, Hospitalization)
  Sender: MYLAN
  Company Number: IT-MYLANLABS-2025M1027087

PATIENT
  Sex: Male

DRUGS (8)
  1. AMIODARONE [Suspect]
     Active Substance: AMIODARONE
     Indication: Ventricular tachycardia
  2. AMIODARONE [Suspect]
     Active Substance: AMIODARONE
     Route: 065
  3. AMIODARONE [Suspect]
     Active Substance: AMIODARONE
     Route: 065
  4. AMIODARONE [Suspect]
     Active Substance: AMIODARONE
  5. MEXILETINE [Suspect]
     Active Substance: MEXILETINE
     Indication: Ventricular tachycardia
  6. MEXILETINE [Suspect]
     Active Substance: MEXILETINE
     Route: 065
  7. MEXILETINE [Suspect]
     Active Substance: MEXILETINE
     Route: 065
  8. MEXILETINE [Suspect]
     Active Substance: MEXILETINE

REACTIONS (1)
  - Drug ineffective [Unknown]
